FAERS Safety Report 9590776 (Version 2)
Quarter: 2013Q4

REPORT INFORMATION
  Report Type: Spontaneous
  Country: US (occurrence: US)
  Receive Date: 20131003
  Receipt Date: 20131007
  Transmission Date: 20140711
  Serious: No
  Sender: FDA-Public Use
  Company Number: US-009507513-1310USA000018

PATIENT
  Age: 21 Year
  Sex: Female
  Weight: 102.95 kg

DRUGS (1)
  1. NEXPLANON [Suspect]
     Indication: CONTRACEPTION
     Dosage: 68MG/3 YEAR IMPLANT
     Route: 059
     Dates: start: 20130130

REACTIONS (3)
  - Device breakage [Not Recovered/Not Resolved]
  - Menstruation irregular [Not Recovered/Not Resolved]
  - Device kink [Not Recovered/Not Resolved]
